FAERS Safety Report 12187414 (Version 1)
Quarter: 2016Q1

REPORT INFORMATION
  Report Type: Spontaneous
  Country: US (occurrence: None)
  Receive Date: 20160316
  Receipt Date: 20160316
  Transmission Date: 20160526
  Serious: Yes (Other)
  Sender: FDA-Public Use
  Company Number: None

PATIENT
  Age: 45 Year
  Sex: Male
  Weight: 86.18 kg

DRUGS (10)
  1. COLCRYS [Concomitant]
     Active Substance: COLCHICINE
  2. MIDODRINE [Concomitant]
     Active Substance: MIDODRINE
  3. LORATADINE. [Concomitant]
     Active Substance: LORATADINE
  4. LIDOCAINE/PRILOCAINE 2.5%-2.5% FOUGERA [Suspect]
     Active Substance: LIDOCAINE\PRILOCAINE
     Indication: SKIN DISORDER
     Dosage: APPLY 1 HOUR BEFORE DIALYSIS, THREE TIMES WEEKLY, TOPICAL
     Route: 061
     Dates: start: 20151105, end: 20160201
  5. SIMVASTATIN. [Concomitant]
     Active Substance: SIMVASTATIN
  6. CLOPIDOGREL [Concomitant]
     Active Substance: CLOPIDOGREL BISULFATE
  7. RANITIDINE [Concomitant]
     Active Substance: RANITIDINE\RANITIDINE HYDROCHLORIDE
  8. FUROSEMIDE. [Concomitant]
     Active Substance: FUROSEMIDE
  9. RENVELA [Concomitant]
     Active Substance: SEVELAMER CARBONATE
  10. TRIPHROCAPS [Concomitant]
     Active Substance: ASCORBIC ACID\BIOTIN\CALCIUM PANTOTHENATE\CYANOCOBALAMIN\FOLIC ACID\NIACINAMIDE\PYRIDOXINE HYDROCHLORIDE\RIBOFLAVIN\THIAMINE HYDROCHLORIDE

REACTIONS (4)
  - Skin irritation [None]
  - Discomfort [None]
  - Burning sensation [None]
  - Chemical injury [None]

NARRATIVE: CASE EVENT DATE: 20151105
